FAERS Safety Report 11526249 (Version 2)
Quarter: 2015Q3

REPORT INFORMATION
  Report Type: Spontaneous
  Country: ES (occurrence: ES)
  Receive Date: 20150919
  Receipt Date: 20150928
  Transmission Date: 20151125
  Serious: Yes (Hospitalization)
  Sender: FDA-Public Use
  Company Number: ES-AUROBINDO-AUR-APL-2015-08134

PATIENT
  Sex: Male
  Weight: .65 kg

DRUGS (2)
  1. MEROPENEM. [Concomitant]
     Active Substance: MEROPENEM
     Indication: KLEBSIELLA INFECTION
     Dosage: UNK
     Route: 065
  2. LEVOFLOXACIN. [Suspect]
     Active Substance: LEVOFLOXACIN
     Indication: PNEUMONIA
     Dosage: 8.5 MG/KG, EVERY 12 HOURS
     Route: 065

REACTIONS (10)
  - Anuria [Recovered/Resolved]
  - Circulatory collapse [Recovered/Resolved]
  - Metabolic acidosis [Recovered/Resolved]
  - Haemodynamic instability [Recovered/Resolved]
  - Distributive shock [Recovered/Resolved]
  - Tachycardia [Recovered/Resolved]
  - Shock [Recovered/Resolved]
  - Hyperlactacidaemia [Recovered/Resolved]
  - Generalised oedema [Recovered/Resolved]
  - Blood pressure decreased [Recovered/Resolved]
